FAERS Safety Report 23734195 (Version 1)
Quarter: 2024Q2

REPORT INFORMATION
  Report Type: Spontaneous
  Country: DE (occurrence: DE)
  Receive Date: 20240412
  Receipt Date: 20240412
  Transmission Date: 20240715
  Serious: Yes (Other)
  Sender: FDA-Public Use
  Company Number: DE-CADRBFARM-2024326979

PATIENT
  Age: 57 Year
  Sex: Male
  Weight: 60 kg

DRUGS (14)
  1. AMPICILLIN AND SULBACTAM [Suspect]
     Active Substance: AMPICILLIN SODIUM\SULBACTAM SODIUM
     Indication: Infectious pleural effusion
     Dosage: 3X 3 G EXPECTED DELIVERY BY 202404
     Route: 042
     Dates: start: 20240315
  2. CEFTOLOZANE SULFATE\TAZOBACTAM SODIUM [Suspect]
     Active Substance: CEFTOLOZANE SULFATE\TAZOBACTAM SODIUM
     Indication: Pseudomonas infection
     Dosage: 3X 2 G/1 G EXPECTED DELIVERY BY 20240425
     Route: 042
     Dates: start: 20240314
  3. CEFTOLOZANE SULFATE\TAZOBACTAM SODIUM [Suspect]
     Active Substance: CEFTOLOZANE SULFATE\TAZOBACTAM SODIUM
     Indication: Bacterial infection
  4. CEFTOLOZANE SULFATE\TAZOBACTAM SODIUM [Suspect]
     Active Substance: CEFTOLOZANE SULFATE\TAZOBACTAM SODIUM
     Indication: Infectious pleural effusion
  5. LACOSAMIDE [Concomitant]
     Active Substance: LACOSAMIDE
     Indication: Epilepsy
     Dosage: 300 MILLIGRAM, ONCE A DAY
     Route: 048
     Dates: start: 2020
  6. POTASSIUM CHLORIDE [Concomitant]
     Active Substance: POTASSIUM CHLORIDE
     Indication: Hypokalaemia
     Dosage: 40 MILLIMOLE, ONCE A DAY
     Route: 048
     Dates: start: 20240319
  7. LAMOTRIGINE [Concomitant]
     Active Substance: LAMOTRIGINE
     Indication: Epilepsy
     Dosage: 150 MILLIGRAM, ONCE A DAY
     Route: 048
     Dates: start: 2020
  8. LINEZOLID [Concomitant]
     Active Substance: LINEZOLID
     Indication: Infectious pleural effusion
     Dosage: 2X 600 MG EXPECTED DELIVERY BY202404
     Route: 042
     Dates: start: 20240305
  9. LINEZOLID [Concomitant]
     Active Substance: LINEZOLID
     Indication: Enterococcal infection
  10. CARIPRAZINE [Concomitant]
     Active Substance: CARIPRAZINE
     Indication: Schizophrenia
     Dosage: 4.5 MILLIGRAM
     Route: 048
     Dates: start: 2020
  11. THIAMINE [Concomitant]
     Active Substance: THIAMINE
     Indication: Vitamin B complex deficiency
     Dosage: 100 MILLIGRAM, ONCE A DAY
     Route: 048
     Dates: start: 20240320
  12. Melperona [Concomitant]
     Indication: Delirium
     Dosage: 25-50 MG/D
     Route: 048
     Dates: start: 20240319
  13. Melperona [Concomitant]
     Indication: Sleep disorder
  14. CLOZAPINE [Concomitant]
     Active Substance: CLOZAPINE
     Indication: Epilepsy
     Dosage: 425 MILLIGRAM, ONCE A DAY
     Route: 048
     Dates: start: 2020

REACTIONS (1)
  - Epilepsy [Recovering/Resolving]

NARRATIVE: CASE EVENT DATE: 20240321
